FAERS Safety Report 10466639 (Version 1)
Quarter: 2014Q3

REPORT INFORMATION
  Report Type: Spontaneous
  Country: US (occurrence: None)
  Receive Date: 20140919
  Receipt Date: 20140919
  Transmission Date: 20150326
  Serious: No
  Sender: FDA-Public Use
  Company Number: None

PATIENT
  Age: 61 Year
  Sex: Male
  Weight: 86.18 kg

DRUGS (1)
  1. SLO-NIACIN [Suspect]
     Active Substance: DIETARY SUPPLEMENT
     Indication: BLOOD CHOLESTEROL ABNORMAL
     Dosage: 2 TABS @ BEDTIME ?ONCE DAILY?TAKEN BY MOUTH
     Route: 048
     Dates: start: 1998

REACTIONS (1)
  - Medication residue present [None]

NARRATIVE: CASE EVENT DATE: 20140918
